FAERS Safety Report 10662179 (Version 1)
Quarter: 2014Q4

REPORT INFORMATION
  Report Type: Spontaneous
  Country: US (occurrence: None)
  Receive Date: 20141216
  Receipt Date: 20141216
  Transmission Date: 20150529
  Serious: Yes (Hospitalization, Other)
  Sender: FDA-Public Use
  Company Number: US-2014VAL000629

PATIENT
  Age: 57 Year
  Sex: Male
  Weight: 73 kg

DRUGS (15)
  1. WARFARIN (WARFARIN) [Concomitant]
     Active Substance: WARFARIN
  2. BASILIXIMAB (BASILIXIMABP) [Concomitant]
  3. LEVETIRACETAM (LEVETIRACETAM) [Concomitant]
     Active Substance: LEVETIRACETAM
  4. EZETIMIBE (EZETIMIBE) (TABLET) [Concomitant]
     Active Substance: EZETIMIBE
  5. PREDNISONE (PREDNISONE) [Concomitant]
     Active Substance: PREDNISONE
  6. FINASTERIDE (FINASTERIDE) [Concomitant]
     Active Substance: FINASTERIDE
  7. FOLIC ACID (FOLIC ACID) [Concomitant]
     Active Substance: FOLIC ACID
  8. MYCOPHENOLATE MOFETIL (MYCOPHENOLATE MOFETIL) [Concomitant]
     Active Substance: MYCOPHENOLATE MOFETIL
  9. OMEPRAZOLE (OMPRAZOLE) [Concomitant]
  10. TACROLIMUS (TACROLIMUS) [Suspect]
     Active Substance: TACROLIMUS
     Indication: IMMUNOSUPPRESSION
     Dosage: 3 MG, BID, Q 12 HOURS
     Dates: start: 20091007, end: 20091009
  11. SIMVASTATIN (SIMVASTATIN) [Concomitant]
     Active Substance: SIMVASTATIN
  12. METHYLPREDNISOLONE (METHYLPREDNISOLONE) [Concomitant]
     Active Substance: METHYLPREDNISOLONE
  13. CARBAMAZEPINE (CARBAMAZEPINE) UNKNOWN [Suspect]
     Active Substance: CARBAMAZEPINE
     Indication: SEIZURE
     Dates: end: 20091008
  14. PHENOBARBITAL (PHENOBARBITAL) [Suspect]
     Active Substance: PHENOBARBITAL
     Indication: SEIZURE
     Dates: start: 20091007, end: 20091012
  15. TAMSULOSIN (TAMSULOSIN) [Concomitant]
     Active Substance: TAMSULOSIN

REACTIONS (2)
  - Kidney transplant rejection [None]
  - Drug interaction [None]

NARRATIVE: CASE EVENT DATE: 20091007
